FAERS Safety Report 5321669-3 (Version None)
Quarter: 2007Q2

REPORT INFORMATION
  Report Type: 
  Country: None (occurrence: None)
  Receive Date: 20070220
  Receipt Date: 20061115
  Transmission Date: 20071010
  Serious: No
  Sender: FDA-Public Use
  Company Number: TPA2006A02051

PATIENT
  Sex: 0

DRUGS (1)
  1. ROZEREM [Suspect]
     Dosage: 8 MG, 1 IN 1 D, PER ORAL
     Route: 048

REACTIONS (1)
  - TINNITUS [None]
